FAERS Safety Report 5772495-2 (Version None)
Quarter: 2008Q2

REPORT INFORMATION
  Report Type: 
  Country: None (occurrence: None)
  Receive Date: 20080601
  Receipt Date: 20080302
  Transmission Date: 20081010
  Serious: No
  Sender: FDA-Public Use
  Company Number: US200803000238

PATIENT
  Age: 76 Year
  Sex: Female
  Weight: 129.7 kg

DRUGS (5)
  1. BYETTA [Suspect]
     Indication: TYPE 2 DIABETES MELLITUS
     Dosage: 5 UG, 2/D, SUBCUTANEOUS
     Route: 058
     Dates: start: 20080214
  2. TAMBOCOR [Concomitant]
  3. HYDROCHLOROTHIAZIDE [Concomitant]
  4. CADUET (AMLODIPINE BESILATE, ATORVASTATIN CALCIUM) [Concomitant]
  5. CATAPRES [Concomitant]

REACTIONS (9)
  - ABDOMINAL PAIN [None]
  - BLOOD GLUCOSE INCREASED [None]
  - CONSTIPATION [None]
  - DRUG INEFFECTIVE [None]
  - ERUCTATION [None]
  - MUSCLE SPASMS [None]
  - MYALGIA [None]
  - NAUSEA [None]
  - WEIGHT DECREASED [None]
